FAERS Safety Report 4781150-7 (Version None)
Quarter: 2005Q3

REPORT INFORMATION
  Report Type: 
  Country: None (occurrence: None)
  Receive Date: 20050926
  Receipt Date: 20050914
  Transmission Date: 20060218
  Serious: Yes (Death)
  Sender: FDA-Public Use
  Company Number: 2005127306

PATIENT
  Age: 84 Year
  Sex: Female

DRUGS (12)
  1. CLINDAMYCIN PHOSPHATE [Suspect]
     Indication: POSTOPERATIVE INFECTION
     Dosage: 600 MG (DIALY INTERVAL: EVERY DAY), ORAL
     Route: 048
     Dates: start: 20050601, end: 20050710
  2. FUCIDINE CAP [Suspect]
     Indication: POSTOPERATIVE INFECTION
     Dosage: 1500 MG (DAILY INTERVAL: EVERY DAY)
     Dates: start: 20050601, end: 20050710
  3. EFFEXOR [Concomitant]
  4. FLUCONAZOLE [Concomitant]
  5. ALVEDON (PARACETAMOL) [Concomitant]
  6. PROPAVAN (PROPIOMAZINE MALEATE) [Concomitant]
  7. LASIX RETARD (FUROSEMIDE) [Concomitant]
  8. AMILORID (AMILORIDE) [Concomitant]
  9. IMDUR [Concomitant]
  10. ASPIRIN [Concomitant]
  11. SIFROL (PRAMIPEXOLE DIHYDROCHLORIDE) [Concomitant]
  12. OXYCONTIN [Concomitant]

REACTIONS (12)
  - ALANINE AMINOTRANSFERASE INCREASED [None]
  - ASPARTATE AMINOTRANSFERASE INCREASED [None]
  - ASTHENIA [None]
  - BLOOD BILIRUBIN INCREASED [None]
  - BLOOD CREATININE INCREASED [None]
  - DEHYDRATION [None]
  - FATIGUE [None]
  - GENERAL PHYSICAL HEALTH DETERIORATION [None]
  - HEPATIC ENZYME INCREASED [None]
  - HEPATORENAL SYNDROME [None]
  - JAUNDICE [None]
  - LIVER DISORDER [None]
